FAERS Safety Report 9799709 (Version 2)
Quarter: 2014Q1

REPORT INFORMATION
  Report Type: Spontaneous
  Country: US (occurrence: US)
  Receive Date: 20140106
  Receipt Date: 20140106
  Transmission Date: 20141002
  Serious: No
  Sender: FDA-Public Use
  Company Number: US-GILEAD-2010-0031933

PATIENT
  Age: 28 Year
  Sex: Female
  Weight: 72.3 kg

DRUGS (6)
  1. LETAIRIS [Suspect]
     Indication: PULMONARY ARTERIAL HYPERTENSION
     Route: 048
     Dates: start: 20100914
  2. DIGOXIN [Concomitant]
  3. COUMADIN [Concomitant]
  4. MEXILETINE [Concomitant]
  5. PROZAC [Concomitant]
  6. LORATADINE [Concomitant]

REACTIONS (4)
  - Hypoaesthesia [Recovered/Resolved]
  - Arthropathy [Recovered/Resolved]
  - Headache [Recovered/Resolved]
  - Oedema [Not Recovered/Not Resolved]
